FAERS Safety Report 19641602 (Version 1)
Quarter: 2021Q3

REPORT INFORMATION
  Report Type: Spontaneous
  Country: AU (occurrence: AU)
  Receive Date: 20210730
  Receipt Date: 20210730
  Transmission Date: 20211014
  Serious: Yes (Other)
  Sender: FDA-Public Use
  Company Number: AU-PFIZER INC-2021862407

PATIENT
  Age: 20 Year
  Sex: Female

DRUGS (6)
  1. MOVICOL [Concomitant]
     Active Substance: POLYETHYLENE GLYCOL 3350\POTASSIUM CHLORIDE\SODIUM BICARBONATE\SODIUM CHLORIDE
     Dosage: UNK, AS NEEDED
  2. CLOPINE [Suspect]
     Active Substance: CLOZAPINE
     Dosage: UNK
     Dates: start: 20210327
  3. SERTRALINE HCL [Suspect]
     Active Substance: SERTRALINE HYDROCHLORIDE
     Dosage: 200 MG, 1X/DAY (MANE)
  4. CLOPINE [Suspect]
     Active Substance: CLOZAPINE
     Dosage: 325 MG, DAILY (50MG MANE, 275MG NOCTE)
  5. METFORMIN [Concomitant]
     Active Substance: METFORMIN HYDROCHLORIDE
     Dosage: 1500 MG, DAILY
  6. COLOXYL WITH SENNA [DOCUSATE SODIUM;SENNOSIDE A+B] [Concomitant]
     Active Substance: DOCUSATE SODIUM\SENNOSIDES A AND B
     Dosage: 2 DF, AS NEEDED

REACTIONS (12)
  - Atrial septal defect [Unknown]
  - Salivary hypersecretion [Unknown]
  - Dizziness [Unknown]
  - Heart rate increased [Unknown]
  - Electrocardiogram repolarisation abnormality [Unknown]
  - Constipation [Unknown]
  - Tricuspid valve incompetence [Unknown]
  - Dizziness postural [Unknown]
  - Cardiac disorder [Unknown]
  - Left ventricular dysfunction [Unknown]
  - Sinus tachycardia [Unknown]
  - Blood pressure orthostatic decreased [Unknown]

NARRATIVE: CASE EVENT DATE: 20210328
